FAERS Safety Report 14798501 (Version 2)
Quarter: 2018Q2

REPORT INFORMATION
  Report Type: Spontaneous
  Country: US (occurrence: US)
  Receive Date: 20180424
  Receipt Date: 20180426
  Transmission Date: 20180711
  Serious: No
  Sender: FDA-Public Use
  Company Number: US-PFIZER INC-2018165122

PATIENT
  Sex: Female

DRUGS (3)
  1. ZOLOFT [Suspect]
     Active Substance: SERTRALINE HYDROCHLORIDE
     Dosage: 150 MG, UNK, INCREASED TO 150 MG (UNKNOWN FREQUENCY) ABOUT 8 OR 9 MONTHS BEFORE
  2. ZOLOFT [Suspect]
     Active Substance: SERTRALINE HYDROCHLORIDE
     Dosage: 150 MG, 1X/DAY (IN THE MORNING)
  3. ZOLOFT [Suspect]
     Active Substance: SERTRALINE HYDROCHLORIDE
     Dosage: 100 MG, UNK
     Dates: start: 201701

REACTIONS (5)
  - Contusion [Unknown]
  - Peripheral swelling [Unknown]
  - Rash [Unknown]
  - Mass [Unknown]
  - Pain in extremity [Unknown]
